FAERS Safety Report 9175245 (Version 1)
Quarter: 2013Q1

REPORT INFORMATION
  Report Type: Spontaneous
  Country: US (occurrence: US)
  Receive Date: 20130320
  Receipt Date: 20130320
  Transmission Date: 20140127
  Serious: No
  Sender: FDA-Public Use
  Company Number: US-009507513-1303USA009578

PATIENT
  Age: 85 None
  Sex: Female
  Weight: 50.79 kg

DRUGS (12)
  1. MIRALAX [Suspect]
     Indication: MEDICAL OBSERVATION
     Dosage: 17 G, QD
     Route: 048
     Dates: start: 20130212, end: 20130215
  2. MIRALAX [Suspect]
     Indication: LAXATIVE SUPPORTIVE CARE
  3. PROLIA [Concomitant]
     Indication: OSTEOPOROSIS
     Dosage: 2X PER YEAR
  4. BENZONATATE [Concomitant]
     Indication: SPINAL FRACTURE
     Dosage: UNK, UNKNOWN
  5. DILTIAZEM HYDROCHLORIDE [Concomitant]
     Indication: GASTROOESOPHAGEAL REFLUX DISEASE
     Dosage: UNK, UNKNOWN
  6. PRAVASTATIN SODIUM [Concomitant]
     Indication: LYMPHOMA
     Dosage: UNK, UNKNOWN
  7. FERROUS SULFATE [Concomitant]
     Indication: HEART RATE IRREGULAR
     Dosage: UNK, UNKNOWN
  8. ASPIRIN [Concomitant]
     Indication: PRODUCT USED FOR UNKNOWN INDICATION
     Dosage: UNK, UNKNOWN
  9. TEMAZEPAM [Concomitant]
     Indication: PRODUCT USED FOR UNKNOWN INDICATION
     Dosage: UNK, UNKNOWN
  10. OMEPRAZOLE [Concomitant]
     Indication: PRODUCT USED FOR UNKNOWN INDICATION
     Dosage: UNK, UNKNOWN
  11. DETROL LA [Concomitant]
     Indication: PRODUCT USED FOR UNKNOWN INDICATION
     Dosage: UNK, UNKNOWN
  12. VITAMIN D (UNSPECIFIED) [Concomitant]
     Indication: PRODUCT USED FOR UNKNOWN INDICATION
     Dosage: ONCE A MONTH

REACTIONS (2)
  - Diarrhoea [Unknown]
  - Drug ineffective [Unknown]
